FAERS Safety Report 25543656 (Version 2)
Quarter: 2025Q3

REPORT INFORMATION
  Report Type: Spontaneous
  Country: US (occurrence: None)
  Receive Date: 20250711
  Receipt Date: 20250812
  Transmission Date: 20251020
  Serious: No
  Sender: INCYTE
  Company Number: US-INCYTE CORPORATION-2025IN007301

PATIENT
  Age: 58 Year

DRUGS (2)
  1. JAKAFI [Suspect]
     Active Substance: RUXOLITINIB
     Indication: Myeloproliferative neoplasm
     Dosage: 15 MILLIGRAM, BID
  2. JAKAFI [Suspect]
     Active Substance: RUXOLITINIB
     Indication: Essential thrombocythaemia

REACTIONS (8)
  - Pyrexia [Recovered/Resolved]
  - Hyperhidrosis [Unknown]
  - Headache [Recovered/Resolved]
  - Fatigue [Unknown]
  - Arthralgia [Unknown]
  - Off label use [Unknown]
  - Pain [Recovered/Resolved]
  - Dizziness [Recovered/Resolved]
